FAERS Safety Report 11321119 (Version 3)
Quarter: 2015Q3

REPORT INFORMATION
  Report Type: Spontaneous
  Country: JP (occurrence: JP)
  Receive Date: 20150729
  Receipt Date: 20150827
  Transmission Date: 20151125
  Serious: Yes (Hospitalization)
  Sender: FDA-Public Use
  Company Number: JP-EISAI MEDICAL RESEARCH-EC-2015-008938

PATIENT
  Age: 76 Year
  Sex: Male
  Weight: 46 kg

DRUGS (6)
  1. ARICEPT [Suspect]
     Active Substance: DONEPEZIL HYDROCHLORIDE
     Indication: DEMENTIA WITH LEWY BODIES
     Route: 048
     Dates: start: 20150401, end: 20150414
  2. SENNA [Concomitant]
     Active Substance: SENNA LEAF\SENNOSIDES\SENNOSIDES A AND B
     Indication: CONSTIPATION
     Route: 048
     Dates: start: 20150105
  3. ARICEPT [Suspect]
     Active Substance: DONEPEZIL HYDROCHLORIDE
     Route: 048
     Dates: start: 20150528, end: 20150609
  4. ARICEPT [Suspect]
     Active Substance: DONEPEZIL HYDROCHLORIDE
     Route: 048
     Dates: start: 20150415, end: 20150527
  5. URIEF [Concomitant]
     Active Substance: SILODOSIN
     Indication: BENIGN PROSTATIC HYPERPLASIA
     Route: 048
     Dates: start: 20150315
  6. MADOPAR [Concomitant]
     Active Substance: BENSERAZIDE HYDROCHLORIDE\LEVODOPA
     Indication: PARKINSONISM
     Route: 048
     Dates: start: 20150315

REACTIONS (1)
  - Pancreatitis [Recovering/Resolving]

NARRATIVE: CASE EVENT DATE: 20150527
